FAERS Safety Report 25565523 (Version 1)
Quarter: 2025Q3

REPORT INFORMATION
  Report Type: Spontaneous
  Country: US (occurrence: US)
  Receive Date: 20250716
  Receipt Date: 20250716
  Transmission Date: 20251020
  Serious: No
  Sender: NOVO NORDISK
  Company Number: US-NOVOPROD-1299871

PATIENT
  Sex: Male

DRUGS (1)
  1. OZEMPIC [Suspect]
     Active Substance: SEMAGLUTIDE
     Indication: Type 2 diabetes mellitus
     Dosage: 0.25MG ONCE WEEKLY FOR 4 WEEKS.
     Route: 058

REACTIONS (3)
  - Vision blurred [Recovering/Resolving]
  - Abdominal pain upper [Recovered/Resolved]
  - Product communication issue [Unknown]

NARRATIVE: CASE EVENT DATE: 20240801
